FAERS Safety Report 13710941 (Version 1)
Quarter: 2017Q3

REPORT INFORMATION
  Report Type: Spontaneous
  Country: JP (occurrence: JP)
  Receive Date: 20170703
  Receipt Date: 20170703
  Transmission Date: 20171127
  Serious: Yes (Hospitalization)
  Sender: FDA-Public Use
  Company Number: JP-HQ SPECIALTY-JP-2017INT000232

PATIENT
  Age: 70 Year
  Sex: Male

DRUGS (1)
  1. PACLITAXEL. [Suspect]
     Active Substance: PACLITAXEL
     Indication: VASCULAR STENT RESTENOSIS
     Dosage: UNK, SINGLE

REACTIONS (4)
  - Off label use [Not Recovered/Not Resolved]
  - Arteriosclerosis coronary artery [Unknown]
  - Angina unstable [Unknown]
  - Vascular wall hypertrophy [Unknown]
